FAERS Safety Report 7069207-1 (Version None)
Quarter: 2010Q4

REPORT INFORMATION
  Report Type: 
  Country: None (occurrence: None)
  Receive Date: 20101028
  Receipt Date: 20101018
  Transmission Date: 20110411
  Serious: Yes (Hospitalization)
  Sender: FDA-Public Use
  Company Number: B0681271A

PATIENT
  Sex: Male

DRUGS (3)
  1. REQUIP CR [Suspect]
     Route: 048
     Dates: start: 20090528
  2. MADOPAR DEPOT [Concomitant]
     Route: 048
     Dates: start: 19991210
  3. STALEVO 100 [Concomitant]
     Route: 048
     Dates: start: 20040429

REACTIONS (2)
  - PATHOLOGICAL GAMBLING [None]
  - PULMONARY EMBOLISM [None]
